FAERS Safety Report 13180903 (Version 1)
Quarter: 2017Q1

REPORT INFORMATION
  Report Type: Spontaneous
  Country: US (occurrence: US)
  Receive Date: 20170202
  Receipt Date: 20170202
  Transmission Date: 20170428
  Serious: No
  Sender: FDA-Public Use
  Company Number: US-SMITH AND NEPHEW, INC-2016SMT00282

PATIENT
  Age: 73 Year
  Sex: Male
  Weight: 73 kg

DRUGS (5)
  1. VITAMINS [Concomitant]
     Active Substance: VITAMINS
     Dosage: UNK
  2. ELIQUIS [Concomitant]
     Active Substance: APIXABAN
     Dosage: UNK
  3. NITROGLYCERIN. [Concomitant]
     Active Substance: NITROGLYCERIN
     Dosage: UNK, AS NEEDED
  4. REGRANEX [Suspect]
     Active Substance: BECAPLERMIN
     Indication: WOUND
     Dosage: UNK, 1X/DAY
     Route: 061
     Dates: start: 201603
  5. RENVELA [Concomitant]
     Active Substance: SEVELAMER CARBONATE
     Dosage: UNK

REACTIONS (2)
  - Off label use [Unknown]
  - Wound complication [Unknown]

NARRATIVE: CASE EVENT DATE: 201603
